FAERS Safety Report 18246258 (Version 1)
Quarter: 2020Q3

REPORT INFORMATION
  Report Type: Spontaneous
  Country: US (occurrence: US)
  Receive Date: 20200909
  Receipt Date: 20200909
  Transmission Date: 20201103
  Serious: No
  Sender: FDA-Public Use
  Company Number: US-DRREDDYS-USA/USA/20/0126478

PATIENT
  Age: 73 Year
  Sex: Male
  Weight: 69.75 kg

DRUGS (1)
  1. NUPERCAINAL [Suspect]
     Active Substance: DIBUCAINE
     Indication: HAEMORRHOIDS
     Route: 061

REACTIONS (2)
  - Product physical consistency issue [Unknown]
  - Expired product administered [Unknown]
